FAERS Safety Report 11944279 (Version 4)
Quarter: 2016Q1

REPORT INFORMATION
  Report Type: Spontaneous
  Country: FR (occurrence: FR)
  Receive Date: 20160125
  Receipt Date: 20160301
  Transmission Date: 20160526
  Serious: Yes (Hospitalization)
  Sender: FDA-Public Use
  Company Number: FR-EMD SERONO-8063545

PATIENT
  Age: 35 Year
  Sex: Female

DRUGS (4)
  1. GONAPEPTYL [Suspect]
     Active Substance: TRIPTORELIN ACETATE
     Indication: IN VITRO FERTILISATION
     Dates: start: 2015, end: 2015
  2. PUREGON                            /01348901/ [Suspect]
     Active Substance: FOLLITROPIN
     Route: 058
     Dates: end: 201507
  3. OVITRELLE [Suspect]
     Active Substance: CHORIOGONADOTROPIN ALFA
     Indication: IN VITRO FERTILISATION
     Dosage: FORM STRENGTH: 250 MICROGRAMS/0.5 ML IN A PRE-FILLED SYRINGE
     Route: 058
     Dates: start: 20150711
  4. PUREGON                            /01348901/ [Suspect]
     Active Substance: FOLLITROPIN
     Indication: IN VITRO FERTILISATION
     Route: 058
     Dates: start: 201506

REACTIONS (2)
  - Ovarian hyperstimulation syndrome [Recovered/Resolved]
  - Pain [Recovered/Resolved]

NARRATIVE: CASE EVENT DATE: 20150725
